FAERS Safety Report 9458826 (Version 2)
Quarter: 2013Q3

REPORT INFORMATION
  Report Type: Report from Study
  Country: AR (occurrence: AR)
  Receive Date: 20130814
  Receipt Date: 20130913
  Transmission Date: 20140515
  Serious: Yes (Other)
  Sender: FDA-Public Use
  Company Number: PHHY2013AR087617

PATIENT
  Sex: Female

DRUGS (3)
  1. DIOVAN [Suspect]
     Indication: HYPERTENSION
     Dosage: 160 MG, DAILY
     Route: 048
  2. DIOVAN [Suspect]
     Indication: CARDIAC DISORDER
  3. DBI AP [Suspect]
     Dosage: UNK UKN, UNK

REACTIONS (2)
  - Blood glucose increased [Recovered/Resolved]
  - Visual acuity reduced [Recovered/Resolved]
